FAERS Safety Report 8486391-3 (Version None)
Quarter: 2012Q3

REPORT INFORMATION
  Report Type: 
  Country: None (occurrence: None)
  Receive Date: 20120703
  Receipt Date: 20120626
  Transmission Date: 20120928
  Serious: Yes (Other)
  Sender: FDA-Public Use
  Company Number: UY-GLAXOSMITHKLINE-B0811630A

PATIENT
  Age: 7 Year
  Sex: Male

DRUGS (4)
  1. LAMIVUDINE + ZIDOVUDINE [Concomitant]
     Indication: HIV INFECTION
     Route: 048
  2. NELFINAVIR MESYLATE [Concomitant]
     Indication: HIV INFECTION
     Route: 048
  3. FLUTICASONE PROPIONATE [Suspect]
     Indication: ASTHMA
     Route: 055
  4. LOPINAVIR AND RITONAVIR [Suspect]
     Indication: HIV INFECTION
     Route: 048

REACTIONS (4)
  - DRUG INTERACTION [None]
  - CUSHING'S SYNDROME [None]
  - WEIGHT INCREASED [None]
  - SKIN STRIAE [None]
